FAERS Safety Report 24742414 (Version 1)
Quarter: 2024Q4

REPORT INFORMATION
  Report Type: Spontaneous
  Country: US (occurrence: None)
  Receive Date: 20241216
  Receipt Date: 20241216
  Transmission Date: 20250114
  Serious: Yes (Hospitalization)
  Sender: Public
  Company Number: None

PATIENT
  Age: 70 Year
  Sex: Male

DRUGS (16)
  1. MYCOPHENOLIC ACID [Suspect]
     Active Substance: MYCOPHENOLIC ACID
     Indication: Renal transplant
     Dosage: 750 MG BID ORAL
     Route: 048
     Dates: end: 20241202
  2. ALLOPURINOL [Concomitant]
     Active Substance: ALLOPURINOL
  3. ATORVASTATIN [Concomitant]
     Active Substance: ATORVASTATIN
  4. CALCITRIOL 0.25MCG CAPSULES [Concomitant]
  5. CARVEDILOL 25MG TABLETS [Concomitant]
  6. DAPSONE [Concomitant]
     Active Substance: DAPSONE
  7. ELIQUIS [Concomitant]
     Active Substance: APIXABAN
  8. FAMOTIDINE [Concomitant]
     Active Substance: FAMOTIDINE
  9. HYDRALAZINE [Concomitant]
     Active Substance: HYDRALAZINE HYDROCHLORIDE
  10. INSULIN ASPART [Concomitant]
     Active Substance: INSULIN ASPART
  11. MAG-OXIDE 400MG TABLETS [Concomitant]
  12. NIFEDIPINE 30MG ER (XL/DSM) TABLETS [Concomitant]
  13. PREDNISONE [Concomitant]
     Active Substance: PREDNISONE
  14. SEVELAMER CARBONATE [Concomitant]
     Active Substance: SEVELAMER CARBONATE
  15. SODIUM BICARBONATE 10GR (650MG) TABLETS [Concomitant]
  16. TORSEMIDE 20MG TABLETS [Concomitant]

REACTIONS (3)
  - Diarrhoea [None]
  - Dehydration [None]
  - Weight decreased [None]

NARRATIVE: CASE EVENT DATE: 20241202
